FAERS Safety Report 8190818-4 (Version None)
Quarter: 2012Q1

REPORT INFORMATION
  Report Type: 
  Country: None (occurrence: None)
  Receive Date: 20120221
  Receipt Date: 20111130
  Transmission Date: 20120608
  Serious: No
  Sender: FDA-Public Use
  Company Number: 1000025865

PATIENT
  Age: 65 Year
  Sex: Female

DRUGS (7)
  1. DIOVAN [Concomitant]
  2. ZIAC (BISELECT /01166101/) (BISELECT /01166101/) [Concomitant]
  3. BENTYL (DICYCLOVERINE HYDROCHLORIDE) (DICYCLOVERINE HYDROCHLORIDE) [Concomitant]
  4. VIIBRYD [Suspect]
     Indication: DEPRESSION
     Dosage: 10 MG (10 MG, 1 IN 1 D), ORAL 10 MG (10 MG, 1 IN 1 D), ORAL 20 MG (20 MG, 1 IN 1 D), ORAL
     Route: 048
     Dates: start: 20111122, end: 20111128
  5. VIIBRYD [Suspect]
     Indication: DEPRESSION
     Dosage: 10 MG (10 MG, 1 IN 1 D), ORAL 10 MG (10 MG, 1 IN 1 D), ORAL 20 MG (20 MG, 1 IN 1 D), ORAL
     Route: 048
     Dates: start: 20111130
  6. VIIBRYD [Suspect]
     Indication: DEPRESSION
     Dosage: 10 MG (10 MG, 1 IN 1 D), ORAL 10 MG (10 MG, 1 IN 1 D), ORAL 20 MG (20 MG, 1 IN 1 D), ORAL
     Route: 048
     Dates: start: 20111129, end: 20111129
  7. TRAZODONE (TRAZODONE) (TRAZODONE) [Concomitant]

REACTIONS (2)
  - SLEEP DISORDER [None]
  - NAUSEA [None]
